FAERS Safety Report 14296865 (Version 2)
Quarter: 2018Q4

REPORT INFORMATION
  Report Type: Spontaneous
  Country: HR (occurrence: HR)
  Receive Date: 20171218
  Receipt Date: 20181023
  Transmission Date: 20190204
  Serious: Yes (Death, Life-Threatening, Hospitalization, Other)
  Sender: FDA-Public Use
  Company Number: HR-MYLANLABS-2017M1078722

PATIENT
  Age: 70 Year
  Sex: Female

DRUGS (6)
  1. INSULIN ASPART W/INSULIN ASPART PROTAMINE (CR [Suspect]
     Active Substance: INSULIN ASPART
     Indication: TYPE 2 DIABETES MELLITUS
     Dosage: 20 IU,UNK
  2. METFORMIN [Suspect]
     Active Substance: METFORMIN HYDROCHLORIDE
     Indication: TYPE 2 DIABETES MELLITUS
     Dosage: 1 G, QD
  3. GLIMEPIRIDE. [Concomitant]
     Active Substance: GLIMEPIRIDE
     Indication: TYPE 2 DIABETES MELLITUS
     Dosage: UNK
     Route: 065
  4. FUROSEMID                          /00032601/ [Concomitant]
     Active Substance: FUROSEMIDE
     Indication: PRODUCT USED FOR UNKNOWN INDICATION
     Dosage: 0.5 G, UNK
     Route: 065
  5. BISOPROLOL [Concomitant]
     Active Substance: BISOPROLOL
     Indication: PRODUCT USED FOR UNKNOWN INDICATION
     Dosage: 2.5 MG, UNK
     Route: 065
  6. AMLODIPIN                          /00972401/ [Concomitant]
     Active Substance: AMLODIPINE BESYLATE
     Indication: PRODUCT USED FOR UNKNOWN INDICATION
     Dosage: 10 MG, UNK
     Route: 065

REACTIONS (25)
  - Azotaemia [Fatal]
  - Respiratory failure [Fatal]
  - Bradycardia [Fatal]
  - Blood potassium increased [Fatal]
  - Vomiting [Fatal]
  - Pallor [Fatal]
  - Dehydration [Fatal]
  - Blood chloride decreased [Fatal]
  - Diarrhoea [Fatal]
  - Lactic acidosis [Fatal]
  - Hypothermia [Fatal]
  - Loss of consciousness [Fatal]
  - Renal failure [Fatal]
  - Cardio-respiratory arrest [Fatal]
  - Dry skin [Fatal]
  - Hypotension [Fatal]
  - Hypoglycaemia [Fatal]
  - Skin turgor decreased [Fatal]
  - Atrial fibrillation [Fatal]
  - Dyspnoea [Fatal]
  - PO2 increased [Fatal]
  - Asthenia [Fatal]
  - Blood bicarbonate increased [Fatal]
  - Blood pH decreased [Fatal]
  - PCO2 decreased [Fatal]
